FAERS Safety Report 4957828-9 (Version None)
Quarter: 2006Q1

REPORT INFORMATION
  Report Type: 
  Country: None (occurrence: None)
  Receive Date: 20060324
  Receipt Date: 20060313
  Transmission Date: 20060701
  Serious: Yes (Other)
  Sender: FDA-Public Use
  Company Number: 2006036084

PATIENT
  Age: 38 Year
  Sex: Female

DRUGS (5)
  1. CLINDAMYCIN HYDROCHLORIDE [Suspect]
     Indication: ILL-DEFINED DISORDER
     Dosage: (600 MG), ORAL
     Route: 048
  2. AMOXICILLIN [Suspect]
     Indication: ILL-DEFINED DISORDER
     Dosage: 1500 MG (500 MG, 3 IN 1 D), ORAL
     Route: 048
  3. WARFARIN SODIUM [Suspect]
     Indication: ILL-DEFINED DISORDER
  4. PERNIDOPRIL (PERINDOPRIL) [Concomitant]
  5. METOPROLOL (METOPROLOL) [Concomitant]

REACTIONS (1)
  - INTERNATIONAL NORMALISED RATIO INCREASED [None]
